FAERS Safety Report 25774365 (Version 1)
Quarter: 2025Q3

REPORT INFORMATION
  Report Type: Spontaneous
  Country: US (occurrence: None)
  Receive Date: 20250908
  Receipt Date: 20250908
  Transmission Date: 20251021
  Serious: Yes (Hospitalization)
  Sender: FDA-CTU
  Company Number: None

PATIENT
  Age: 76 Year
  Sex: Male

DRUGS (10)
  1. POMALYST [Suspect]
     Active Substance: POMALIDOMIDE
     Indication: Plasma cell myeloma
     Dosage: FREQUENCY : DAILY;?
     Route: 048
     Dates: start: 20241024, end: 20250825
  2. ATORVASTATIN [Concomitant]
     Active Substance: ATORVASTATIN
  3. CALTRATE 600 +D TAB [Concomitant]
  4. DEXAMETHASONE 2MG TABLETS [Concomitant]
  5. FUROSEMIDE [Concomitant]
     Active Substance: FUROSEMIDE
  6. GABAPENTIN 1OOMG CAPSULES [Concomitant]
  7. ASPIRIN 81MG EC LOW DOSE TABLETS [Concomitant]
  8. HUMALOG INSULIN (VL-7510) 10ML [Concomitant]
  9. LANTUS U-100 INSULIN 10ML [Concomitant]
  10. LISINOPRIL [Concomitant]
     Active Substance: LISINOPRIL

REACTIONS (3)
  - COVID-19 [None]
  - Disease complication [None]
  - Therapy interrupted [None]
